FAERS Safety Report 4511222-3 (Version None)
Quarter: 2004Q4

REPORT INFORMATION
  Report Type: 
  Country: None (occurrence: None)
  Receive Date: 20041122
  Receipt Date: 20041122
  Transmission Date: 20050328
  Serious: Yes (Disabling)
  Sender: FDA-Public Use
  Company Number: None

PATIENT
  Sex: Male
  Weight: 68.0396 kg

DRUGS (1)
  1. NIASPAN [Suspect]
     Indication: HEPATITIS
     Dosage: 1500 MG  DAILY  ORAL
     Route: 048
     Dates: start: 20031112, end: 20040701

REACTIONS (1)
  - HEPATITIS [None]
